FAERS Safety Report 8044041-4 (Version None)
Quarter: 2012Q1

REPORT INFORMATION
  Report Type: 
  Country: None (occurrence: None)
  Receive Date: 20120111
  Receipt Date: 20120111
  Transmission Date: 20120608
  Serious: Yes (Hospitalization)
  Sender: FDA-Public Use
  Company Number: None

PATIENT
  Age: 71 Year
  Sex: Male

DRUGS (1)
  1. LORAZEPAM [Suspect]
     Indication: AGITATION

REACTIONS (2)
  - CONFUSIONAL STATE [None]
  - MENTAL STATUS CHANGES [None]
